FAERS Safety Report 12254976 (Version 5)
Quarter: 2018Q1

REPORT INFORMATION
  Report Type: Spontaneous
  Country: US (occurrence: US)
  Receive Date: 20160411
  Receipt Date: 20180302
  Transmission Date: 20180508
  Serious: Yes (Hospitalization)
  Sender: FDA-Public Use
  Company Number: US-PFIZER INC-2016197763

PATIENT
  Age: 81 Year
  Sex: Female
  Weight: 56.24 kg

DRUGS (5)
  1. XELJANZ [Suspect]
     Active Substance: TOFACITINIB CITRATE
     Indication: RHEUMATOID ARTHRITIS
     Dosage: 5 MG, 2X/DAY
     Dates: start: 201511
  2. XELJANZ [Suspect]
     Active Substance: TOFACITINIB CITRATE
     Dosage: 5 MG, 2X/DAY
     Route: 048
  3. ISONIAZID. [Concomitant]
     Active Substance: ISONIAZID
     Dosage: 300 MG, DAILY
  4. VITAMIN B6 [Concomitant]
     Active Substance: PYRIDOXINE HYDROCHLORIDE
     Dosage: 50 MG, DAILY
  5. VITAMIN D [Concomitant]
     Active Substance: CHOLECALCIFEROL
     Indication: SUPPLEMENTATION THERAPY
     Dosage: 1000 IU, 1X/DAY
     Route: 048

REACTIONS (13)
  - Drug dose omission [Recovering/Resolving]
  - Vomiting [Recovered/Resolved]
  - Dry eye [Unknown]
  - Bronchitis [Unknown]
  - Infection [Recovering/Resolving]
  - Tremor [Recovered/Resolved]
  - Visual impairment [Recovered/Resolved]
  - Sepsis [Recovered/Resolved]
  - Dizziness [Recovered/Resolved]
  - Hypoacusis [Recovered/Resolved]
  - Sinusitis [Unknown]
  - Middle ear effusion [Unknown]
  - Pyrexia [Not Recovered/Not Resolved]

NARRATIVE: CASE EVENT DATE: 201712
